FAERS Safety Report 8242708-6 (Version None)
Quarter: 2012Q1

REPORT INFORMATION
  Report Type: 
  Country: None (occurrence: None)
  Receive Date: 20120314
  Receipt Date: 20110104
  Transmission Date: 20120608
  Serious: No
  Sender: FDA-Public Use
  Company Number: PHHY2011US01331

PATIENT
  Sex: Female

DRUGS (3)
  1. LEXAPRO [Concomitant]
  2. LUNESTA [Concomitant]
  3. FANAPT [Suspect]
     Indication: SCHIZOPHRENIA
     Dosage: 2 MG, BID, ORAL
     Route: 048

REACTIONS (1)
  - DIZZINESS [None]
